FAERS Safety Report 5523113-X (Version None)
Quarter: 2007Q4

REPORT INFORMATION
  Report Type: 
  Country: None (occurrence: None)
  Receive Date: 20071121
  Receipt Date: 20071109
  Transmission Date: 20080405
  Serious: Yes (Other)
  Sender: FDA-Public Use
  Company Number: US-ROCHE-531139

PATIENT
  Age: 4 Year
  Sex: Female

DRUGS (1)
  1. ROCEPHIN [Suspect]
     Indication: PNEUMONIA
     Route: 065
     Dates: start: 20071105, end: 20071106

REACTIONS (2)
  - ABASIA [None]
  - PHYSICAL DISABILITY [None]
